FAERS Safety Report 4593552-2 (Version None)
Quarter: 2005Q1

REPORT INFORMATION
  Report Type: 
  Country: None (occurrence: None)
  Receive Date: 20050224
  Receipt Date: 20040830
  Transmission Date: 20050727
  Serious: No
  Sender: FDA-Public Use
  Company Number: US-BRISTOL-MYERS SQUIBB COMPANY-12690475

PATIENT
  Sex: Female

DRUGS (2)
  1. EXCEDRIN (MIGRAINE) [Suspect]
     Indication: HEADACHE
     Route: 048
     Dates: start: 20040830, end: 20040830
  2. VINPOCETINE [Concomitant]
     Dates: start: 20040830, end: 20040830

REACTIONS (2)
  - CHEST PAIN [None]
  - DIZZINESS [None]
